FAERS Safety Report 23151472 (Version 1)
Quarter: 2023Q4

REPORT INFORMATION
  Report Type: Spontaneous
  Country: US (occurrence: US)
  Receive Date: 20231107
  Receipt Date: 20231107
  Transmission Date: 20240109
  Serious: Yes (Other)
  Sender: FDA-Public Use
  Company Number: US-ABBVIE-5476282

PATIENT
  Sex: Female

DRUGS (1)
  1. REFRESH CLASSIC [Suspect]
     Active Substance: POLYVINYL ALCOHOL\POVIDONE
     Indication: Product used for unknown indication
     Dosage: PVA 14MG/ML;POVIDONE 6MG/ML
     Route: 047

REACTIONS (4)
  - Colon operation [Unknown]
  - Illness [Unknown]
  - Visual impairment [Unknown]
  - Drug ineffective [Unknown]
